FAERS Safety Report 19078718 (Version 1)
Quarter: 2021Q1

REPORT INFORMATION
  Report Type: Spontaneous
  Country: GB (occurrence: GB)
  Receive Date: 20210331
  Receipt Date: 20210331
  Transmission Date: 20210420
  Serious: Yes (Other)
  Sender: FDA-Public Use
  Company Number: GB-PFIZER INC-2021349304

PATIENT
  Age: 29 Year
  Sex: Female

DRUGS (1)
  1. HYDROCORTISONE SODIUM SUCCINATE [Suspect]
     Active Substance: HYDROCORTISONE SODIUM SUCCINATE
     Dosage: UNK
     Route: 030

REACTIONS (4)
  - Anaphylactic reaction [Unknown]
  - Dermatitis exfoliative generalised [Unknown]
  - Angioedema [Unknown]
  - Hypotension [Unknown]
